FAERS Safety Report 5676929-3 (Version None)
Quarter: 2008Q2

REPORT INFORMATION
  Report Type: 
  Country: None (occurrence: None)
  Receive Date: 20080311
  Receipt Date: 20080129
  Transmission Date: 20081010
  Serious: No
  Sender: FDA-Public Use
  Company Number: 002#4#2008-00035

PATIENT
  Age: 60 Year
  Sex: Male
  Weight: 89.3586 kg

DRUGS (9)
  1. NEUPRO [Suspect]
     Indication: DRUG USE FOR UNKNOWN INDICATION
     Dosage: 6MG/24H, 1 IN 1 D, TRANSDERMAL
     Route: 062
  2. APOMORPHINE [Concomitant]
  3. ATENOLOL [Concomitant]
  4. CARB/LEVODOPA [Concomitant]
  5. DOCUSAT SODIUM [Concomitant]
  6. OMEPRAZOLE [Concomitant]
  7. SONATA [Concomitant]
  8. VERSED [Concomitant]
  9. ATIVAN [Concomitant]

REACTIONS (1)
  - MYOCLONUS [None]
